FAERS Safety Report 7916849-4 (Version None)
Quarter: 2011Q4

REPORT INFORMATION
  Report Type: 
  Country: None (occurrence: None)
  Receive Date: 20111116
  Receipt Date: 20111110
  Transmission Date: 20120403
  Serious: Yes (Life-Threatening, Hospitalization, Disabling, Other)
  Sender: FDA-Public Use
  Company Number: DE-BRISTOL-MYERS SQUIBB COMPANY-16096620

PATIENT
  Age: 55 Year
  Sex: Male
  Weight: 80 kg

DRUGS (16)
  1. CISPLATIN [Suspect]
     Indication: NON-SMALL CELL LUNG CANCER
     Route: 042
     Dates: start: 20110831, end: 20110831
  2. ACETYLSALICYLIC ACID SRT [Concomitant]
     Indication: PERIPHERAL ARTERIAL OCCLUSIVE DISEASE
     Dosage: 1DF:100 UNIT NOS
     Dates: start: 20100901
  3. NOVALGIN [Concomitant]
     Dosage: 1DF:20 UNIT NOS
  4. LORZAAR [Concomitant]
     Indication: PERIPHERAL ARTERIAL OCCLUSIVE DISEASE
     Dosage: 1DF:50 UNIT NOS
     Dates: start: 20100901
  5. GEMCITABINE [Suspect]
     Indication: NON-SMALL CELL LUNG CANCER
     Dosage: DAY1 AND DAY 8 OF EACH 3 WEEK CYCLE
     Route: 042
     Dates: start: 20110831, end: 20110831
  6. PANTOPRAZOLE SODIUM [Concomitant]
     Dosage: 1DF:40 UNIT NOS
  7. ALBUTEROL SULFATE [Concomitant]
  8. CETUXIMAB [Suspect]
     Indication: NON-SMALL CELL LUNG CANCER
     Dosage: 5MG/ML IS THE STRENGTH.
     Route: 042
     Dates: start: 20110831, end: 20110921
  9. SIMVASTATIN [Concomitant]
     Indication: CARDIOMYOPATHY
     Dosage: 1DF:20 UNIT NOS
  10. LASIX [Concomitant]
  11. CLOPIDOGREL BISULFATE [Concomitant]
     Indication: PERIPHERAL ARTERIAL OCCLUSIVE DISEASE
     Dosage: 1DF:75 UNIT NOS
     Dates: start: 20110903
  12. HEPARIN [Concomitant]
     Indication: CARDIOMYOPATHY
  13. NEBIVOLOL HCL [Concomitant]
     Indication: CARDIOMYOPATHY
     Dosage: 1DF:2.5 UNIT NOS
  14. ATROVENT [Concomitant]
  15. DIPIDOLOR [Concomitant]
     Dosage: 1DF:1/4TH AMPOULES
  16. TAZOBAC [Concomitant]
     Route: 042

REACTIONS (2)
  - STRESS CARDIOMYOPATHY [None]
  - ACUTE MYOCARDIAL INFARCTION [None]
